FAERS Safety Report 12105517 (Version 1)
Quarter: 2016Q1

REPORT INFORMATION
  Report Type: Spontaneous
  Country: US (occurrence: None)
  Receive Date: 20160222
  Receipt Date: 20160222
  Transmission Date: 20160526
  Serious: Yes (Other)
  Sender: FDA-Public Use
  Company Number: None

PATIENT
  Age: 75 Year
  Sex: Female
  Weight: 68.04 kg

DRUGS (1)
  1. BUDESONIDE. [Suspect]
     Active Substance: BUDESONIDE
     Indication: VIRAL INFECTION
     Dates: start: 20160118, end: 20160119

REACTIONS (3)
  - Epistaxis [None]
  - Pharyngeal haemorrhage [None]
  - Blood pressure increased [None]

NARRATIVE: CASE EVENT DATE: 20160119
